FAERS Safety Report 6935087-5 (Version None)
Quarter: 2010Q3

REPORT INFORMATION
  Report Type: 
  Country: None (occurrence: None)
  Receive Date: 20100822
  Receipt Date: 20100811
  Transmission Date: 20110219
  Serious: Yes (Other)
  Sender: FDA-Public Use
  Company Number: PHHY2010US53362

PATIENT

DRUGS (1)
  1. EXELON [Suspect]
     Dosage: 4.5 MG

REACTIONS (1)
  - GASTRIC CANCER [None]
